FAERS Safety Report 25037198 (Version 1)
Quarter: 2025Q1

REPORT INFORMATION
  Report Type: Spontaneous
  Country: US (occurrence: US)
  Receive Date: 20250304
  Receipt Date: 20250304
  Transmission Date: 20250408
  Serious: No
  Sender: MYLAN
  Company Number: US-MYLANLABS-2025M1015141

PATIENT
  Sex: Male
  Weight: 104.33 kg

DRUGS (12)
  1. LATANOPROST [Suspect]
     Active Substance: LATANOPROST
     Indication: Ocular discomfort
     Route: 065
  2. LATANOPROST [Suspect]
     Active Substance: LATANOPROST
  3. LATANOPROST [Suspect]
     Active Substance: LATANOPROST
  4. LATANOPROST [Suspect]
     Active Substance: LATANOPROST
     Route: 065
  5. LATANOPROST [Suspect]
     Active Substance: LATANOPROST
     Route: 065
  6. LATANOPROST [Suspect]
     Active Substance: LATANOPROST
  7. LATANOPROST [Suspect]
     Active Substance: LATANOPROST
  8. LATANOPROST [Suspect]
     Active Substance: LATANOPROST
     Route: 065
  9. BRIMONIDINE TARTRATE [Concomitant]
     Active Substance: BRIMONIDINE TARTRATE
     Indication: Ocular discomfort
  10. BRIMONIDINE TARTRATE [Concomitant]
     Active Substance: BRIMONIDINE TARTRATE
     Route: 065
  11. BRIMONIDINE TARTRATE [Concomitant]
     Active Substance: BRIMONIDINE TARTRATE
     Route: 065
  12. BRIMONIDINE TARTRATE [Concomitant]
     Active Substance: BRIMONIDINE TARTRATE

REACTIONS (3)
  - Exposure via skin contact [Unknown]
  - Device delivery system issue [Unknown]
  - Product substitution issue [Unknown]
